FAERS Safety Report 19897830 (Version 1)
Quarter: 2021Q3

REPORT INFORMATION
  Report Type: Report from Study
  Country: EG (occurrence: EG)
  Receive Date: 20210930
  Receipt Date: 20210930
  Transmission Date: 20211014
  Serious: Yes (Other)
  Sender: FDA-Public Use
  Company Number: NVSC2021EG219668

PATIENT
  Age: 27 Year
  Sex: Female

DRUGS (5)
  1. BACLOFEN. [Concomitant]
     Active Substance: BACLOFEN
     Dosage: 1 DF, BEFORE BEDTIME
     Route: 065
  2. CYMBATEX [Concomitant]
     Indication: RHEUMATOID ARTHRITIS
     Dosage: 1 DF, QD (AFTER BREAKFAST)
     Route: 048
     Dates: end: 202107
  3. CYMBATEX [Concomitant]
     Dosage: UNK
     Route: 065
  4. BACLOFEN. [Concomitant]
     Active Substance: BACLOFEN
     Indication: RHEUMATOID ARTHRITIS
     Dosage: 2 DF BEFORE BEDTIME
     Route: 048
     Dates: end: 202107
  5. COSENTYX [Suspect]
     Active Substance: SECUKINUMAB
     Indication: RHEUMATOID ARTHRITIS
     Dosage: 150 MG, QMO
     Route: 065
     Dates: start: 202010, end: 202102

REACTIONS (3)
  - Pain [Not Recovered/Not Resolved]
  - Product use in unapproved indication [Recovered/Resolved]
  - Rheumatoid arthritis [Not Recovered/Not Resolved]

NARRATIVE: CASE EVENT DATE: 202010
